FAERS Safety Report 7776940-2 (Version None)
Quarter: 2011Q3

REPORT INFORMATION
  Report Type: 
  Country: None (occurrence: None)
  Receive Date: 20110923
  Receipt Date: 20110923
  Transmission Date: 20111222
  Serious: Yes (Death)
  Sender: FDA-Public Use
  Company Number: None

PATIENT
  Age: 69 Year
  Sex: Female
  Weight: 72 kg

DRUGS (13)
  1. FERAHEME [Suspect]
     Indication: IRON DEFICIENCY ANAEMIA
     Dosage: 510 MG DOSE 2 OF 2 IV
     Route: 042
     Dates: start: 20110816, end: 20110902
  2. ISOSORBIDE MONONITRATE [Concomitant]
  3. SODIUM BICARBONATE [Concomitant]
  4. HOME OXYGEN [Concomitant]
  5. HYDRALAZINE HCL [Concomitant]
  6. CALCITRIOL [Concomitant]
  7. LASIX [Concomitant]
  8. AMLODIPINE BESYLATE [Concomitant]
  9. ASPIRIN [Concomitant]
  10. METOPROLOL SUCCINATE [Concomitant]
  11. VITAMIN D [Concomitant]
  12. CLONIDINE HCL [Concomitant]
  13. BAXTER LOW CA [Concomitant]

REACTIONS (1)
  - CARDIO-RESPIRATORY ARREST [None]
